FAERS Safety Report 19745430 (Version 1)
Quarter: 2021Q3

REPORT INFORMATION
  Report Type: Spontaneous
  Country: DE (occurrence: DE)
  Receive Date: 20210825
  Receipt Date: 20210825
  Transmission Date: 20211014
  Serious: Yes (Other)
  Sender: FDA-Public Use
  Company Number: DE-MYLANLABS-2021M1054466

PATIENT
  Age: 20 Year
  Sex: Male

DRUGS (19)
  1. METHOTREXATE. [Suspect]
     Active Substance: METHOTREXATE
     Indication: BURKITT^S LYMPHOMA
     Dosage: 15 MILLIGRAM, BLOCK A
     Route: 037
  2. METHOTREXATE. [Suspect]
     Active Substance: METHOTREXATE
     Dosage: 450 DOSAGE FORM EVERY 6 DAYS, AFTER AT LEAST 14 DAYS, OVER 24 H
     Route: 042
  3. CYTARABINE. [Suspect]
     Active Substance: CYTARABINE
     Dosage: 300 DOSAGE FORM, Q5D, OVER 1 H (BLOCK A)
     Route: 042
  4. ADRIAMYCIN [Suspect]
     Active Substance: DOXORUBICIN HYDROCHLORIDE
     Dosage: 50 DOSAGE FORM, Q5D, AFTER AT LEAST 14 DAYS (BLOCK B)
     Route: 042
  5. PREDNISONE. [Suspect]
     Active Substance: PREDNISONE
     Indication: BURKITT^S LYMPHOMA
     Dosage: 0.5?1 MG/KG, ON DAYS 1?5 AS PRELIMINARY PHASE (FACULTATIVE)
     Route: 048
  6. LEUCOVORIN                         /00566701/ [Concomitant]
     Active Substance: LEUCOVORIN
     Indication: PROPHYLAXIS
     Dosage: 30 MG EACH 36, 42, 48, 54, 60, AND 66 H AFTER THE METHOTREXATE INFUSION
     Route: 065
  7. METHOTREXATE. [Suspect]
     Active Substance: METHOTREXATE
     Dosage: 50 DOSAGE FORM EVERY 6 DAYS, AFTER AT LEAST 14 DAYS, BOLUS (BLOCK B)
     Route: 040
  8. ENDOXAN                            /00021102/ [Suspect]
     Active Substance: CYCLOPHOSPHAMIDE
     Dosage: UNK, (AFTER 23), ONE COURSE
     Route: 042
  9. CYTARABINE. [Suspect]
     Active Substance: CYTARABINE
     Indication: BURKITT^S LYMPHOMA
     Dosage: UNK, Q5D, (AFTER 23), ONE COURSE
     Route: 065
  10. ENDOXAN                            /00021102/ [Suspect]
     Active Substance: CYCLOPHOSPHAMIDE
     Indication: BURKITT^S LYMPHOMA
     Dosage: 200 DOSAGE FORM, PRELIMINARY PHASE (FACULTATIVE) FOR 1?5 DAYS
     Route: 042
  11. METHOTREXATE. [Suspect]
     Active Substance: METHOTREXATE
     Dosage: 50 DOSAGE FORM EVERY 6 DAYS, INTRAVENOUSLY AS BOLUS (BLOCK A)
     Route: 040
  12. ENDOXAN                            /00021102/ [Suspect]
     Active Substance: CYCLOPHOSPHAMIDE
     Dosage: 200 DOSAGE FORM, INTRAVENOUSLY OR ORALLY DIRECTLY AFTERWARD (BLOCK A) ON 1?5 DAYS
     Route: 065
  13. METHOTREXATE. [Suspect]
     Active Substance: METHOTREXATE
     Dosage: 450 DOSAGE FORM EVERY 6 DAYS, OVER 24 H (BLOCK A)
     Route: 042
  14. DEXAMETHASONE. [Suspect]
     Active Substance: DEXAMETHASONE
     Indication: BURKITT^S LYMPHOMA
     Dosage: ONE COURSE
     Route: 065
  15. ADRIAMYCIN [Suspect]
     Active Substance: DOXORUBICIN HYDROCHLORIDE
     Indication: BURKITT^S LYMPHOMA
     Dosage: UNK, Q5D, (AFTER 23), ONE COURSE
     Route: 065
  16. TENIPOSIDE. [Suspect]
     Active Substance: TENIPOSIDE
     Indication: BURKITT^S LYMPHOMA
     Dosage: 165 DOSAGE FORM, Q5D, OVER 1 H (BLOCK A)
     Route: 042
  17. METHOTREXATE. [Suspect]
     Active Substance: METHOTREXATE
     Dosage: UNK, EVERY 6 DAYS, (AFTER 23), ONE COURSE
     Route: 065
  18. METHOTREXATE. [Suspect]
     Active Substance: METHOTREXATE
     Dosage: 15 MILLIGRAM EVERY 6 DAYS, AFTER AT LEAST 14 DAYS (BLOCK B)
     Route: 037
  19. ENDOXAN                            /00021102/ [Suspect]
     Active Substance: CYCLOPHOSPHAMIDE
     Dosage: 200 DOSAGE FORM, FOR 1?5 DAYS, AFTER AT LEAST 14 DAYS (BLOCK B)
     Route: 042

REACTIONS (2)
  - Alopecia [Unknown]
  - Leukopenia [Unknown]
